FAERS Safety Report 7726964-6 (Version None)
Quarter: 2011Q3

REPORT INFORMATION
  Report Type: 
  Country: None (occurrence: None)
  Receive Date: 20110902
  Receipt Date: 20110830
  Transmission Date: 20111222
  Serious: Yes (Other)
  Sender: FDA-Public Use
  Company Number: US-PFIZER INC-2011202485

PATIENT
  Sex: Female
  Weight: 57.596 kg

DRUGS (9)
  1. ZOCOR [Concomitant]
     Indication: BLOOD CHOLESTEROL DECREASED
     Dosage: UNK
  2. CELEBREX [Suspect]
     Indication: OSTEOARTHRITIS
     Dosage: 200 MG, 2X/DAY
     Route: 048
  3. PROTONIX [Suspect]
     Dosage: 40 MG, 1X/DAY
     Route: 048
     Dates: start: 20100101
  4. CELEBREX [Suspect]
     Indication: FIBROMYALGIA
  5. FLEXERIL [Concomitant]
     Dosage: 10 MG, UNK
  6. GABAPENTIN [Suspect]
     Indication: NEURALGIA
  7. CYMBALTA [Concomitant]
     Dosage: UNK
  8. GABAPENTIN [Suspect]
     Indication: FIBROMYALGIA
     Dosage: 100 MG, 2X/DAY
     Route: 048
     Dates: start: 20101201
  9. DICYCLOMINE [Concomitant]
     Indication: GASTRIC DISORDER
     Dosage: 10 MG, 3X/DAY

REACTIONS (2)
  - HEARING IMPAIRED [None]
  - OSTEOPOROSIS [None]
